FAERS Safety Report 6275065-5 (Version None)
Quarter: 2009Q3

REPORT INFORMATION
  Report Type: 
  Country: None (occurrence: None)
  Receive Date: 20090721
  Receipt Date: 20090706
  Transmission Date: 20100115
  Serious: Yes (Other)
  Sender: FDA-Public Use
  Company Number: US-ROCHE-614561

PATIENT
  Sex: Male
  Weight: 79.4 kg

DRUGS (2)
  1. PEGASYS [Suspect]
     Indication: HEPATITIS C
     Route: 058
     Dates: start: 20070131, end: 20080102
  2. COPEGUS [Suspect]
     Indication: HEPATITIS C
     Route: 048
     Dates: start: 20070131, end: 20080102

REACTIONS (28)
  - AMNESIA [None]
  - ARTHRALGIA [None]
  - BACK PAIN [None]
  - BRONCHITIS [None]
  - CHEST PAIN [None]
  - COUGH [None]
  - DEAFNESS [None]
  - DERMATITIS [None]
  - DIARRHOEA [None]
  - DRUG INEFFECTIVE [None]
  - DYSPNOEA [None]
  - FATIGUE [None]
  - GASTROOESOPHAGEAL REFLUX DISEASE [None]
  - IMPAIRED WORK ABILITY [None]
  - INJECTION SITE REACTION [None]
  - INSOMNIA [None]
  - IRRITABILITY [None]
  - LUNG NEOPLASM [None]
  - MELANOCYTIC NAEVUS [None]
  - MOOD ALTERED [None]
  - PYREXIA [None]
  - RASH PRURITIC [None]
  - SKIN PAPILLOMA [None]
  - SKIN ULCER [None]
  - TENOSYNOVITIS [None]
  - THERMAL BURN [None]
  - VERTIGO [None]
  - VOMITING [None]
